FAERS Safety Report 5173136-8 (Version None)
Quarter: 2006Q4

REPORT INFORMATION
  Report Type: 
  Country: None (occurrence: None)
  Receive Date: 20061207
  Receipt Date: 20061207
  Transmission Date: 20070319
  Serious: Yes (Hospitalization)
  Sender: FDA-Public Use
  Company Number: None

PATIENT
  Sex: Male
  Weight: 71.2147 kg

DRUGS (7)
  1. DOXIL [Suspect]
     Indication: PROSTATE CANCER
     Dosage: 55 MG    DAY 1 Q 28 DAY    IV BOLUS
     Route: 040
     Dates: start: 20060824, end: 20061116
  2. TAXOTERE [Suspect]
     Indication: PROSTATE CANCER
     Dosage: 55 MG   D 1, 8, 15 Q 28    IV BOLUS
     Route: 040
     Dates: start: 20060824, end: 20061130
  3. HUMULIN 70/30 [Concomitant]
  4. PROSCAR [Concomitant]
  5. FLOMAX [Concomitant]
  6. PERCOCET [Concomitant]
  7. DETROL [Concomitant]

REACTIONS (3)
  - CHILLS [None]
  - DYSPNOEA [None]
  - PYREXIA [None]
